FAERS Safety Report 18430158 (Version 1)
Quarter: 2020Q4

REPORT INFORMATION
  Report Type: Other
  Country: KR (occurrence: KR)
  Receive Date: 20201026
  Receipt Date: 20201026
  Transmission Date: 20210114
  Serious: Yes (Disabling)
  Sender: FDA-Public Use
  Company Number: KR-ROCHE-2358499

PATIENT
  Age: 70 Year
  Sex: Female

DRUGS (1)
  1. ATEZOLIZUMAB. [Suspect]
     Active Substance: ATEZOLIZUMAB
     Indication: BLADDER TRANSITIONAL CELL CARCINOMA
     Route: 042

REACTIONS (4)
  - Guillain-Barre syndrome [Not Recovered/Not Resolved]
  - Encephalitis autoimmune [Not Recovered/Not Resolved]
  - Rash [Unknown]
  - Myelitis [Not Recovered/Not Resolved]
